FAERS Safety Report 24088736 (Version 4)
Quarter: 2024Q3

REPORT INFORMATION
  Report Type: Report from Study
  Country: US (occurrence: US)
  Receive Date: 20240715
  Receipt Date: 20240919
  Transmission Date: 20241017
  Serious: Yes (Other)
  Sender: INSMED
  Company Number: US-INSMED, INC.-2024-02499-US

PATIENT
  Age: 79 Year
  Sex: Female

DRUGS (2)
  1. ARIKAYCE [Suspect]
     Active Substance: AMIKACIN
     Indication: Mycobacterium avium complex infection
     Dosage: 590 MILLIGRAM, QD
     Route: 055
     Dates: start: 20240613, end: 2024
  2. ARIKAYCE [Suspect]
     Active Substance: AMIKACIN
     Dosage: 590 MILLIGRAM, TIW
     Route: 055
     Dates: start: 202407

REACTIONS (10)
  - Oxygen saturation decreased [Unknown]
  - Chronic obstructive pulmonary disease [Unknown]
  - Yawning [Recovered/Resolved]
  - Dyspnoea exertional [Not Recovered/Not Resolved]
  - Fatigue [Unknown]
  - Dysgeusia [Recovered/Resolved]
  - Dysphonia [Not Recovered/Not Resolved]
  - Aphonia [Recovering/Resolving]
  - Dyspnoea [Recovering/Resolving]
  - Intentional product use issue [Unknown]

NARRATIVE: CASE EVENT DATE: 20240601
